FAERS Safety Report 13866901 (Version 1)
Quarter: 2017Q3

REPORT INFORMATION
  Report Type: Report from Study
  Country: CA (occurrence: CA)
  Receive Date: 20170814
  Receipt Date: 20170814
  Transmission Date: 20171127
  Serious: Yes (Other)
  Sender: FDA-Public Use
  Company Number: CA-HLSUS-2017-CA-000888

PATIENT
  Age: 28 Year
  Sex: Female

DRUGS (6)
  1. VALPROATE [Concomitant]
     Active Substance: VALPROIC ACID
  2. METHOTRIMEPRAZINE [Concomitant]
     Active Substance: LEVOMEPROMAZINE
  3. FLUPENTHIXOL [Concomitant]
     Active Substance: FLUPENTIXOL DECANOATE
  4. METOPROLOL. [Concomitant]
     Active Substance: METOPROLOL
  5. CLOZARIL [Suspect]
     Active Substance: CLOZAPINE
     Dosage: 400 MG QHS
     Route: 048
     Dates: start: 20170516
  6. BENZTROPINE [Concomitant]
     Active Substance: BENZTROPINE

REACTIONS (1)
  - Oculogyric crisis [Unknown]

NARRATIVE: CASE EVENT DATE: 20170810
